FAERS Safety Report 4571705-7 (Version None)
Quarter: 2005Q1

REPORT INFORMATION
  Report Type: 
  Country: None (occurrence: None)
  Receive Date: 20050207
  Receipt Date: 20041125
  Transmission Date: 20050727
  Serious: Yes (Hospitalization)
  Sender: FDA-Public Use
  Company Number: ES-ROCHE-387111

PATIENT
  Age: 58 Year
  Sex: Female
  Weight: 67.2 kg

DRUGS (7)
  1. DACLIZUMAB [Suspect]
     Route: 042
     Dates: start: 20041019
  2. DACLIZUMAB [Suspect]
     Route: 042
     Dates: end: 20041214
  3. MYCOPHENOLATE MOFETIL [Suspect]
     Route: 048
     Dates: start: 20041019
  4. SIROLIMUS [Suspect]
     Route: 048
     Dates: start: 20041019
  5. STEROIDS NOS [Suspect]
     Route: 048
     Dates: start: 20041019
  6. OMEPRAZOLE [Concomitant]
     Route: 048
     Dates: start: 20041020
  7. COTRIM [Concomitant]
     Route: 048
     Dates: start: 20041020

REACTIONS (6)
  - ESCHERICHIA BACTERAEMIA [None]
  - ESCHERICHIA URINARY TRACT INFECTION [None]
  - HERPES OPHTHALMIC [None]
  - INTESTINAL OBSTRUCTION [None]
  - SUBILEUS [None]
  - URINARY TRACT INFECTION [None]
